FAERS Safety Report 10356760 (Version 2)
Quarter: 2014Q3

REPORT INFORMATION
  Report Type: Spontaneous
  Country: US (occurrence: US)
  Receive Date: 20140801
  Receipt Date: 20140801
  Transmission Date: 20150326
  Serious: Yes (Other)
  Sender: FDA-Public Use
  Company Number: US-AMGEN-USASP2014054945

PATIENT
  Age: 53 Year
  Sex: Female
  Weight: 71.2 kg

DRUGS (4)
  1. VITAMIN D2 [Concomitant]
     Active Substance: ERGOCALCIFEROL
     Dosage: 50000 UNIT, UNK
     Dates: start: 20131109
  2. ARAVA [Concomitant]
     Active Substance: LEFLUNOMIDE
     Dosage: 20 MG, UNK
     Dates: start: 20140602
  3. FOLIC ACID. [Concomitant]
     Active Substance: FOLIC ACID
     Dosage: 1 MG, UNK
     Dates: start: 20131107
  4. ENBREL [Suspect]
     Active Substance: ETANERCEPT
     Indication: RHEUMATOID ARTHRITIS
     Dosage: 50 MG, QWK
     Route: 065
     Dates: start: 20131003

REACTIONS (10)
  - Arthralgia [Not Recovered/Not Resolved]
  - Granuloma [Unknown]
  - Synovitis [Recovering/Resolving]
  - Intraductal papilloma of breast [Not Recovered/Not Resolved]
  - Periostitis [Unknown]
  - Back pain [Unknown]
  - Skin papilloma [Not Recovered/Not Resolved]
  - Vitamin D decreased [Unknown]
  - Pain [Unknown]
  - Gingivitis [Unknown]
